FAERS Safety Report 14277802 (Version 1)
Quarter: 2017Q4

REPORT INFORMATION
  Report Type: Spontaneous
  Country: FR (occurrence: FR)
  Receive Date: 20171211
  Receipt Date: 20171211
  Transmission Date: 20180321
  Serious: Yes (Other)
  Sender: FDA-Public Use
  Company Number: FR-OTSUKA-DJ20116289

PATIENT

DRUGS (5)
  1. LYRICA [Concomitant]
     Active Substance: PREGABALIN
     Route: 065
  2. TOPALGIC (TRAMADOL HYDROCHLORIDE) [Concomitant]
     Active Substance: TRAMADOL HYDROCHLORIDE
     Route: 065
  3. LEXOMIL [Concomitant]
     Active Substance: BROMAZEPAM
     Route: 065
  4. ABILIFY [Suspect]
     Active Substance: ARIPIPRAZOLE
     Indication: PSYCHOTIC DISORDER
     Route: 048
  5. TERCIAN [Concomitant]
     Active Substance: CYAMEMAZINE
     Route: 065

REACTIONS (1)
  - Electrocardiogram QT prolonged [Unknown]
